FAERS Safety Report 7784548-8 (Version None)
Quarter: 2011Q3

REPORT INFORMATION
  Report Type: 
  Country: None (occurrence: None)
  Receive Date: 20110928
  Receipt Date: 20110914
  Transmission Date: 20111222
  Serious: No
  Sender: FDA-Public Use
  Company Number: US-B.I. PHARMACEUTICALS,INC./RIDGEFIELD-2011-BP-19117BP

PATIENT
  Age: 60 Year
  Sex: Female
  Weight: 119.75 kg

DRUGS (8)
  1. CELEXA [Concomitant]
     Indication: DEPRESSION
     Dosage: 40 MG
     Dates: start: 20091111
  2. CARDIZEM LA [Concomitant]
     Indication: HYPERTENSION
     Dates: start: 20091022
  3. PRADAXA [Suspect]
     Indication: ATRIAL FIBRILLATION
     Dosage: 300 MG
     Route: 048
     Dates: start: 20110720
  4. LASIX [Concomitant]
     Indication: FLUID RETENTION
  5. NORVASC [Concomitant]
     Indication: HYPERTENSION
     Dosage: 5 MG
     Dates: start: 20100927
  6. AMBIEN [Concomitant]
     Indication: SLEEP DISORDER
  7. LORTAB [Concomitant]
     Indication: SLEEP DISORDER
     Dates: start: 20080607
  8. COZAAR [Concomitant]
     Indication: HYPERTENSION
     Dosage: 50 MG
     Dates: start: 20100927

REACTIONS (3)
  - CHEST PAIN [None]
  - CHEST DISCOMFORT [None]
  - DIZZINESS [None]
